FAERS Safety Report 9701427 (Version 2)
Quarter: 2013Q4

REPORT INFORMATION
  Report Type: Spontaneous
  Country: US (occurrence: US)
  Receive Date: 20131121
  Receipt Date: 20131121
  Transmission Date: 20140711
  Serious: No
  Sender: FDA-Public Use
  Company Number: US-GILEAD-2008-0016354

PATIENT
  Sex: Male
  Weight: 100.7 kg

DRUGS (17)
  1. LETAIRIS [Suspect]
     Indication: PULMONARY ARTERIAL HYPERTENSION
     Route: 048
     Dates: start: 20080402
  2. LETAIRIS [Suspect]
     Route: 048
  3. ADVAIR [Concomitant]
     Route: 055
  4. CENTRUM SILVER [Concomitant]
     Route: 048
  5. JANUVIA [Concomitant]
     Route: 048
  6. LIPITOR [Concomitant]
     Route: 048
  7. AMOXICILLIN [Concomitant]
     Route: 048
  8. BUMETANIDE [Concomitant]
     Route: 048
  9. FEXOFENADINE [Concomitant]
     Route: 048
  10. LISINOPRIL-HYDROCHLOROTHIAZIDE [Concomitant]
     Route: 048
  11. GLIPIZIDE [Concomitant]
     Route: 048
  12. NEXIUM [Concomitant]
     Route: 048
  13. METOPROLOL [Concomitant]
     Route: 048
  14. SPIRIVA [Concomitant]
     Route: 055
  15. IRON [Concomitant]
     Route: 048
  16. ASPIRIN [Concomitant]
     Route: 048
  17. ACTOS [Concomitant]
     Route: 048

REACTIONS (3)
  - Hypotension [None]
  - Malaise [None]
  - Paraesthesia [None]
